FAERS Safety Report 8059697-X (Version None)
Quarter: 2012Q1

REPORT INFORMATION
  Report Type: 
  Country: None (occurrence: None)
  Receive Date: 20120119
  Receipt Date: 20120119
  Transmission Date: 20120608
  Serious: Yes (Hospitalization)
  Sender: FDA-Public Use
  Company Number: None

PATIENT
  Age: 87 Year
  Sex: Female
  Weight: 91.4 kg

DRUGS (1)
  1. COUMADIN [Suspect]
     Indication: ATRIAL FIBRILLATION
     Dosage: 7MG DAILY PO CHRONIC
     Route: 048

REACTIONS (4)
  - TRANSFUSION REACTION [None]
  - HYPOTENSION [None]
  - DIVERTICULUM INTESTINAL HAEMORRHAGIC [None]
  - RASH [None]
